FAERS Safety Report 12104471 (Version 1)
Quarter: 2016Q1

REPORT INFORMATION
  Report Type: Spontaneous
  Country: US (occurrence: US)
  Receive Date: 20160223
  Receipt Date: 20160223
  Transmission Date: 20160526
  Serious: Yes (Other)
  Sender: FDA-Public Use
  Company Number: US-MYLANLABS-2015M1041765

PATIENT
  Sex: Female

DRUGS (1)
  1. NISOLDIPINE. [Suspect]
     Active Substance: NISOLDIPINE
     Dosage: UNK

REACTIONS (4)
  - Palpitations [Recovered/Resolved]
  - Cellulitis [Unknown]
  - Peripheral swelling [Recovered/Resolved]
  - Ecchymosis [Recovered/Resolved]
